FAERS Safety Report 16297903 (Version 2)
Quarter: 2019Q2

REPORT INFORMATION
  Report Type: Report from Study
  Country: US (occurrence: US)
  Receive Date: 20190510
  Receipt Date: 20190610
  Transmission Date: 20190711
  Serious: Yes (Death, Other)
  Sender: FDA-Public Use
  Company Number: US-ASTRAZENECA-2019SE69887

PATIENT
  Sex: Female

DRUGS (3)
  1. FASLODEX [Suspect]
     Active Substance: FULVESTRANT
     Indication: BREAST CANCER FEMALE
     Dosage: UNKNOWN
     Route: 030
  2. FASLODEX [Suspect]
     Active Substance: FULVESTRANT
     Indication: BONE CANCER
     Dosage: UNKNOWN
     Route: 030
  3. IBRANCE [Suspect]
     Active Substance: PALBOCICLIB
     Route: 048

REACTIONS (7)
  - Death [Fatal]
  - Off label use [Unknown]
  - Metastasis [Unknown]
  - Metastases to lung [Unknown]
  - Metastases to stomach [Unknown]
  - Product use in unapproved indication [Unknown]
  - Renal failure [Unknown]
